FAERS Safety Report 25046991 (Version 6)
Quarter: 2025Q3

REPORT INFORMATION
  Report Type: Spontaneous
  Country: CA (occurrence: CA)
  Receive Date: 20250306
  Receipt Date: 20250811
  Transmission Date: 20251021
  Serious: Yes (Other)
  Sender: PFIZER
  Company Number: CA-PFIZER INC-2019225340

PATIENT
  Age: 77 Year
  Sex: Male

DRUGS (6)
  1. BOSULIF [Suspect]
     Active Substance: BOSUTINIB MONOHYDRATE
     Indication: Leukaemia
     Dosage: 300 MG, 1X/DAY
     Route: 048
     Dates: start: 20190719
  2. BOSULIF [Suspect]
     Active Substance: BOSUTINIB MONOHYDRATE
     Dosage: 500 MG, 1X/DAY
     Route: 048
     Dates: start: 2022, end: 202308
  3. BOSULIF [Suspect]
     Active Substance: BOSUTINIB MONOHYDRATE
     Dosage: 500 MG, Q 2DAYS
     Route: 048
  4. DONEPEZIL [Concomitant]
     Active Substance: DONEPEZIL
  5. TADALAFIL [Concomitant]
     Active Substance: TADALAFIL
     Dosage: 5 MG, DAILY
  6. TAMSULOSIN [Concomitant]
     Active Substance: TAMSULOSIN
     Dosage: 0.4 MG, DAILY

REACTIONS (12)
  - Dementia [Unknown]
  - Cognitive disorder [Unknown]
  - Skin lesion [Recovered/Resolved]
  - Malaise [Recovered/Resolved]
  - Haematocrit decreased [Unknown]
  - Haemoglobin decreased [Unknown]
  - Lymphocyte count decreased [Unknown]
  - Mean cell haemoglobin increased [Unknown]
  - Mean cell volume increased [Unknown]
  - Red blood cell count decreased [Unknown]
  - Red blood cell macrocytes present [Unknown]
  - Off label use [Unknown]

NARRATIVE: CASE EVENT DATE: 20250805
